FAERS Safety Report 10190410 (Version 1)
Quarter: 2014Q2

REPORT INFORMATION
  Report Type: Spontaneous
  Country: PL (occurrence: PL)
  Receive Date: 20140522
  Receipt Date: 20140522
  Transmission Date: 20141212
  Serious: Yes (Hospitalization)
  Sender: FDA-Public Use
  Company Number: PL-ACTAVIS-2014-10493

PATIENT
  Age: 42 Year
  Sex: Female

DRUGS (2)
  1. CISPLATIN (UNKNOWN) [Suspect]
     Indication: LUNG NEOPLASM MALIGNANT
     Dosage: 104.21 MG, DAILY
     Route: 042
     Dates: start: 20131121, end: 20131121
  2. GEMCITABINE (UNKNOWN) [Suspect]
     Indication: LUNG NEOPLASM MALIGNANT
     Dosage: 1736.87 MG, DAILY
     Route: 042
     Dates: start: 20131121, end: 20131121

REACTIONS (2)
  - Nausea [Recovered/Resolved]
  - Vomiting [Recovered/Resolved]
